FAERS Safety Report 7310211-3 (Version None)
Quarter: 2011Q1

REPORT INFORMATION
  Report Type: 
  Country: None (occurrence: None)
  Receive Date: 20110224
  Receipt Date: 20110218
  Transmission Date: 20110831
  Serious: No
  Sender: FDA-Public Use
  Company Number: US-PFIZER INC-2011036623

PATIENT
  Sex: Female
  Weight: 56.7 kg

DRUGS (1)
  1. LYRICA [Suspect]
     Indication: MULTIPLE SCLEROSIS
     Dosage: 150 MG, DAILY
     Route: 048
     Dates: start: 20100101, end: 20110217

REACTIONS (2)
  - LIP BLISTER [None]
  - LIP SWELLING [None]
